FAERS Safety Report 6615168-6 (Version None)
Quarter: 2010Q1

REPORT INFORMATION
  Report Type: 
  Country: None (occurrence: None)
  Receive Date: 20100305
  Receipt Date: 20100223
  Transmission Date: 20100710
  Serious: Yes (Disabling, Other)
  Sender: FDA-Public Use
  Company Number: PHHY2009GB45517

PATIENT
  Sex: Female
  Weight: 66.5 kg

DRUGS (4)
  1. TEGRETOL-XR [Suspect]
     Indication: CONVULSION
     Dosage: 200 MG, BID
     Route: 048
     Dates: start: 20090801, end: 20091017
  2. TEGRETOL-XR [Suspect]
     Indication: EPILEPSY
     Dosage: 2 X 200 MG
     Route: 048
     Dates: start: 20091017, end: 20091018
  3. TEGRETOL-XR [Suspect]
     Dosage: 200 MG, BID
     Route: 048
     Dates: start: 20091019
  4. KLIOVANCE [Concomitant]
     Dosage: 1 MG, UNK
     Route: 048

REACTIONS (7)
  - AMNESIA [None]
  - BALANCE DISORDER [None]
  - CONFUSIONAL STATE [None]
  - HEAD DISCOMFORT [None]
  - IMPAIRED DRIVING ABILITY [None]
  - MEMORY IMPAIRMENT [None]
  - WEIGHT DECREASED [None]
